FAERS Safety Report 4932706-X (Version None)
Quarter: 2006Q1

REPORT INFORMATION
  Report Type: 
  Country: None (occurrence: None)
  Receive Date: 20060301
  Receipt Date: 20060214
  Transmission Date: 20060701
  Serious: No
  Sender: FDA-Public Use
  Company Number: US-2005-018154

PATIENT
  Age: 51 Year
  Sex: Male
  Weight: 104 kg

DRUGS (5)
  1. BETASERON [Suspect]
     Indication: RELAPSING-REMITTING MULTIPLE SCLEROSIS
     Dosage: SUBCUTANEOUS; SEE IMAGE
     Route: 058
     Dates: start: 20010101, end: 20040101
  2. BETASERON [Suspect]
     Indication: RELAPSING-REMITTING MULTIPLE SCLEROSIS
     Dosage: SUBCUTANEOUS; SEE IMAGE
     Route: 058
     Dates: start: 20050420
  3. NORCO (HYDRCODONE BITARTRATE) [Concomitant]
  4. BACLOFEN [Concomitant]
  5. TEMAZEPAM [Concomitant]

REACTIONS (1)
  - NO ADVERSE DRUG EFFECT [None]
